FAERS Safety Report 5202257-6 (Version None)
Quarter: 2007Q1

REPORT INFORMATION
  Report Type: 
  Country: None (occurrence: None)
  Receive Date: 20070109
  Receipt Date: 20070105
  Transmission Date: 20070707
  Serious: Yes (Other)
  Sender: FDA-Public Use
  Company Number: US-GLAXOSMITHKLINE-A0634504A

PATIENT
  Age: 45 Year
  Sex: Male

DRUGS (3)
  1. ADVAIR DISKUS 100/50 [Suspect]
     Indication: ASTHMA
     Dosage: 1PUFF TWICE PER DAY
     Route: 055
  2. ALBUTEROL [Concomitant]
  3. PROVENTIL [Concomitant]

REACTIONS (4)
  - ANXIETY [None]
  - CHEST DISCOMFORT [None]
  - DEPENDENCE [None]
  - DRUG INEFFECTIVE [None]
